FAERS Safety Report 5358187-2 (Version None)
Quarter: 2007Q2

REPORT INFORMATION
  Report Type: 
  Country: None (occurrence: None)
  Receive Date: 20070530
  Receipt Date: 20070118
  Transmission Date: 20071010
  Serious: Yes (Hospitalization)
  Sender: FDA-Public Use
  Company Number: US200605002722

PATIENT
  Age: 38 Year
  Sex: Male
  Weight: 74.8 kg

DRUGS (4)
  1. ZYPREXA [Suspect]
     Indication: SLEEP DISORDER
     Dosage: SEE IMAGE
     Dates: start: 20010101, end: 20030910
  2. ZYPREXA [Suspect]
     Indication: SLEEP DISORDER
     Dosage: SEE IMAGE
     Dates: start: 20030521
  3. ARIPIPRAZOLE [Concomitant]
  4. BUPROPION HCL [Concomitant]

REACTIONS (2)
  - CEREBROVASCULAR ACCIDENT [None]
  - DIABETES MELLITUS [None]
